FAERS Safety Report 14837571 (Version 1)
Quarter: 2018Q2

REPORT INFORMATION
  Report Type: Spontaneous
  Country: DE (occurrence: DE)
  Receive Date: 20180502
  Receipt Date: 20180502
  Transmission Date: 20180711
  Serious: Yes (Hospitalization)
  Sender: FDA-Public Use
  Company Number: DE-SA-2018SA113722

PATIENT
  Age: 88 Year
  Sex: Male

DRUGS (8)
  1. EISEN-II-SULFAT [Concomitant]
     Dosage: DOSAGE TEXT 100 MG, 1-0-0-0
     Route: 065
  2. ASPIRIN. [Suspect]
     Active Substance: ASPIRIN
     Dosage: DOSAGE TEXT 100 MG, 1-0-0-0
     Route: 065
  3. PLAVIX [Suspect]
     Active Substance: CLOPIDOGREL BISULFATE
     Dosage: DOSAGE TEXT 75 MG, 1-0-0-0
     Route: 048
  4. TORASEMID [Concomitant]
     Active Substance: TORSEMIDE
     Dosage: DOSE REDUCED
     Route: 065
  5. PANTOPRAZOL [Concomitant]
     Active Substance: PANTOPRAZOLE SODIUM
     Route: 065
  6. CARVEDILOL. [Concomitant]
     Active Substance: CARVEDILOL
     Dosage: DOSAGE TEXT 6.25 MG, 1-0-0-0
     Route: 065
  7. COLECALCIFEROL [Concomitant]
     Active Substance: CHOLECALCIFEROL
     Dosage: DOSAGE TEXT 1000 IE, 1-0-0-0
     Route: 065
  8. TORASEMID [Concomitant]
     Active Substance: TORSEMIDE
     Dosage: 10 MG, 1-0.5-0-0
     Route: 065

REACTIONS (1)
  - Anaemia [Unknown]

NARRATIVE: CASE EVENT DATE: 20161010
